FAERS Safety Report 5150576-4 (Version None)
Quarter: 2006Q4

REPORT INFORMATION
  Report Type: 
  Country: None (occurrence: None)
  Receive Date: 20061114
  Receipt Date: 20061031
  Transmission Date: 20070319
  Serious: Yes (Other)
  Sender: FDA-Public Use
  Company Number: NL-ELI_LILLY_AND_COMPANY-NL200611000254

PATIENT
  Age: 75 Year
  Sex: Female
  Weight: 63 kg

DRUGS (6)
  1. CYMBALTA [Suspect]
     Indication: DEPRESSION
     Dosage: 60 MG, UNK
     Dates: start: 20061014, end: 20061014
  2. DAGYNIL [Concomitant]
     Dosage: 0.625 MG, DAILY (1/D)
  3. OXAZEPAM [Concomitant]
     Dosage: 10 MG, 4/D
  4. SIMVASTATIN [Concomitant]
     Dosage: 10 MG, DAILY (1/D)
  5. ZOMIG [Concomitant]
     Dosage: 2.5 MG, AS NEEDED
  6. OMEPRAZOLE [Concomitant]
     Dosage: 40 MG, DAILY (1/D)

REACTIONS (5)
  - CHEST DISCOMFORT [None]
  - DISORIENTATION [None]
  - DYSPNOEA [None]
  - EYE DISORDER [None]
  - MUSCULAR WEAKNESS [None]
